FAERS Safety Report 16260416 (Version 3)
Quarter: 2019Q3

REPORT INFORMATION
  Report Type: Spontaneous
  Country: VE (occurrence: VE)
  Receive Date: 20190501
  Receipt Date: 20190808
  Transmission Date: 20191004
  Serious: Yes (Death, Hospitalization, Other)
  Sender: FDA-Public Use
  Company Number: PHHY2018VE197837

PATIENT
  Age: 80 Year
  Sex: Female
  Weight: 85 kg

DRUGS (2)
  1. OZONE [Suspect]
     Active Substance: OZONE
     Indication: PRODUCT USED FOR UNKNOWN INDICATION
     Dosage: UNK
     Route: 065
  2. GLIVEC [Suspect]
     Active Substance: IMATINIB MESYLATE
     Indication: CHRONIC MYELOID LEUKAEMIA
     Dosage: 4 DF, QD (400 MG (4 X 100 MG TABLETS))
     Route: 048
     Dates: start: 20181122, end: 20190313

REACTIONS (31)
  - Oedema peripheral [Not Recovered/Not Resolved]
  - Dizziness [Unknown]
  - Mucosal discolouration [Unknown]
  - Lymphadenopathy [Unknown]
  - Multiple organ dysfunction syndrome [Fatal]
  - Sepsis [Fatal]
  - Arthralgia [Unknown]
  - Renal failure [Fatal]
  - Face oedema [Unknown]
  - Haemoglobin decreased [Unknown]
  - Bursitis [Unknown]
  - Pathogen resistance [Fatal]
  - Escherichia infection [Fatal]
  - Anaemia [Not Recovered/Not Resolved]
  - Pseudomonas test positive [Fatal]
  - Skin ulcer [Unknown]
  - Contusion [Unknown]
  - Blister [Unknown]
  - Haematocrit decreased [Unknown]
  - Platelet count decreased [Unknown]
  - Erythema [Recovering/Resolving]
  - Leukocytosis [Unknown]
  - Wound secretion [Unknown]
  - Pyrexia [Unknown]
  - Hypotension [Unknown]
  - Peau d^orange [Unknown]
  - Soft tissue infection [Unknown]
  - Soft tissue necrosis [Unknown]
  - Skin necrosis [Unknown]
  - Nephrotic syndrome [Unknown]
  - Proteinuria [Unknown]

NARRATIVE: CASE EVENT DATE: 20190313
